FAERS Safety Report 12507667 (Version 1)
Quarter: 2016Q2

REPORT INFORMATION
  Report Type: Spontaneous
  Country: US (occurrence: None)
  Receive Date: 20160628
  Receipt Date: 20160628
  Transmission Date: 20160815
  Serious: No
  Sender: FDA-Public Use
  Company Number: None

PATIENT
  Age: 74 Year
  Sex: Female
  Weight: 71.67 kg

DRUGS (6)
  1. AMOXICILLIN\CLAVULANATE POTASSIUM [Suspect]
     Active Substance: AMOXICILLIN\CLAVULANATE POTASSIUM
     Indication: SINUSITIS
     Route: 048
     Dates: start: 20160606, end: 20160611
  2. XANAX [Concomitant]
     Active Substance: ALPRAZOLAM
  3. FLONASE [Concomitant]
     Active Substance: FLUTICASONE PROPIONATE
  4. MUCINEX 12 HR. [Concomitant]
  5. TIMOLOL. [Concomitant]
     Active Substance: TIMOLOL
  6. FOSAMAX [Concomitant]
     Active Substance: ALENDRONATE SODIUM

REACTIONS (7)
  - Mouth ulceration [None]
  - Lip ulceration [None]
  - Application site hypoaesthesia [None]
  - Oropharyngeal pain [None]
  - Vulvovaginal pruritus [None]
  - Oral herpes [None]
  - Oral pain [None]

NARRATIVE: CASE EVENT DATE: 20160611
